FAERS Safety Report 20465407 (Version 1)
Quarter: 2022Q1

REPORT INFORMATION
  Report Type: Report from Study
  Country: FR (occurrence: FR)
  Receive Date: 20220212
  Receipt Date: 20220212
  Transmission Date: 20220423
  Serious: Yes (Hospitalization)
  Sender: FDA-Public Use
  Company Number: FR-SA-SAC20211201001040

PATIENT

DRUGS (28)
  1. CEMIPLIMAB [Suspect]
     Active Substance: CEMIPLIMAB
     Indication: Neoplasm
     Dosage: 350 MG, Q3W
     Route: 042
     Dates: start: 20211116, end: 20211116
  2. INVESTIGATIONAL PRODUCT [Suspect]
     Active Substance: INVESTIGATIONAL PRODUCT
     Indication: Neoplasm
     Dosage: 4000 UG, QW
     Route: 036
     Dates: start: 20211116, end: 20211116
  3. INVESTIGATIONAL PRODUCT [Suspect]
     Active Substance: INVESTIGATIONAL PRODUCT
     Dosage: 400 UG, QW
     Route: 036
     Dates: start: 20211123, end: 20211123
  4. LEVOFLOXACIN [Concomitant]
     Active Substance: LEVOFLOXACIN
     Indication: Prophylaxis
     Dosage: UNK
     Dates: start: 20210812
  5. BISOPROLOL [Concomitant]
     Active Substance: BISOPROLOL
     Indication: Product used for unknown indication
     Dosage: 2.5 MG
     Dates: start: 20210812
  6. FELODIPINE [Concomitant]
     Active Substance: FELODIPINE
     Indication: Product used for unknown indication
     Dosage: 5 MG
     Dates: start: 20210812
  7. METFORMIN HYDROCHLORIDE\VILDAGLIPTIN [Concomitant]
     Active Substance: METFORMIN HYDROCHLORIDE\VILDAGLIPTIN
     Indication: Product used for unknown indication
     Dosage: 50/1000 MG
     Dates: start: 20210812
  8. REPAGLINIDE [Concomitant]
     Active Substance: REPAGLINIDE
     Indication: Product used for unknown indication
     Dosage: 0.5 MG
     Dates: start: 20210812
  9. CREON [Concomitant]
     Active Substance: PANCRELIPASE AMYLASE\PANCRELIPASE LIPASE\PANCRELIPASE PROTEASE
     Indication: Product used for unknown indication
     Dosage: 25000 UI
     Dates: start: 20210812
  10. CRESTOR [Concomitant]
     Active Substance: ROSUVASTATIN CALCIUM
     Indication: Product used for unknown indication
     Dosage: 5 MG
     Dates: start: 20210812
  11. ESOMEPRAZOLE [Concomitant]
     Active Substance: ESOMEPRAZOLE
     Indication: Product used for unknown indication
     Dosage: 40 MG
     Dates: start: 20210812
  12. COSOPT [Concomitant]
     Active Substance: DORZOLAMIDE HYDROCHLORIDE\TIMOLOL MALEATE
     Indication: Product used for unknown indication
     Dosage: UNK
     Dates: start: 20210812
  13. TRAVATAN [Concomitant]
     Active Substance: TRAVOPROST
     Indication: Product used for unknown indication
     Dosage: UNK
     Dates: start: 20210812
  14. GAVISCON                           /01409601/ [Concomitant]
     Indication: Product used for unknown indication
     Dosage: UNK
     Dates: start: 20210812
  15. ACETAMINOPHEN [Concomitant]
     Active Substance: ACETAMINOPHEN
     Indication: Product used for unknown indication
     Dosage: UNK
     Dates: start: 20210812
  16. DIPROSONE                          /00008504/ [Concomitant]
     Indication: Product used for unknown indication
     Dosage: UNK
     Dates: start: 20210812
  17. ALUMINUM HYDROXIDE\ALUMINUM PHOSPHATE\GUAR GUM\MAGNESIUM HYDROXIDE [Concomitant]
     Active Substance: ALUMINUM HYDROXIDE\ALUMINUM PHOSPHATE\GUAR GUM\MAGNESIUM HYDROXIDE
     Indication: Product used for unknown indication
     Dosage: UNK
     Dates: start: 20210812
  18. MINERAL OIL [Concomitant]
     Active Substance: MINERAL OIL
     Indication: Product used for unknown indication
     Dosage: UNK
     Dates: start: 20210821
  19. DUPHALAC                           /00163401/ [Concomitant]
     Indication: Product used for unknown indication
     Dosage: UNK
     Dates: start: 20210921
  20. SOLUPRED                           /00049601/ [Concomitant]
     Indication: Prophylaxis
     Dosage: UNK
     Dates: start: 20211101
  21. RENUTRYL [Concomitant]
     Indication: Product used for unknown indication
     Dosage: UNK
     Dates: start: 20211028
  22. FLAGYL                             /00012501/ [Concomitant]
     Indication: Product used for unknown indication
     Dosage: UNK
     Dates: start: 20211028
  23. CLINUTREN FRUIT [Concomitant]
     Indication: Product used for unknown indication
     Dosage: UNK
     Dates: start: 20210909
  24. LINEZOLID [Concomitant]
     Active Substance: LINEZOLID
     Indication: Product used for unknown indication
     Dosage: UNK
     Dates: start: 20211118, end: 20211201
  25. VANCOMYCINE                        /00314401/ [Concomitant]
     Indication: Product used for unknown indication
     Dosage: UNK
     Dates: start: 20211118, end: 20211124
  26. VANCOMYCINE                        /00314401/ [Concomitant]
     Dosage: UNK
     Dates: start: 20211118, end: 20211125
  27. XGEVA [Concomitant]
     Active Substance: DENOSUMAB
     Indication: Product used for unknown indication
     Dosage: UNK
     Dates: start: 20211123
  28. LINEZOLID [Concomitant]
     Active Substance: LINEZOLID
     Indication: Device related infection
     Dosage: UNK
     Dates: start: 20211118, end: 20211203

REACTIONS (1)
  - General physical health deterioration [Not Recovered/Not Resolved]

NARRATIVE: CASE EVENT DATE: 20211126
